FAERS Safety Report 11143215 (Version 1)
Quarter: 2015Q2

REPORT INFORMATION
  Report Type: Spontaneous
  Country: US (occurrence: US)
  Receive Date: 20150526
  Receipt Date: 20150526
  Transmission Date: 20150821
  Serious: No
  Sender: FDA-Public Use
  Company Number: US-NOVEN PHARMACEUTICALS, INC.-15US013672

PATIENT
  Age: 47 Year
  Sex: Female

DRUGS (3)
  1. ASTHMA                             /00384401/ [Concomitant]
     Indication: ASTHMA
     Dosage: UNK
  2. MINIVELLE [Suspect]
     Active Substance: ESTRADIOL
     Indication: HOT FLUSH
     Dosage: 0.0375MG, UNK
     Route: 062
     Dates: start: 2014
  3. VAGISEM [Concomitant]
     Indication: HORMONE THERAPY
     Dosage: 10 MG, UNK

REACTIONS (3)
  - Wrong technique in drug usage process [Recovered/Resolved]
  - Product quality issue [Not Recovered/Not Resolved]
  - Headache [Not Recovered/Not Resolved]

NARRATIVE: CASE EVENT DATE: 2014
